FAERS Safety Report 8525217-6 (Version None)
Quarter: 2012Q3

REPORT INFORMATION
  Report Type: 
  Country: None (occurrence: None)
  Receive Date: 20120720
  Receipt Date: 20120716
  Transmission Date: 20120928
  Serious: Yes (Hospitalization, Other)
  Sender: FDA-Public Use
  Company Number: PHEH2012US010794

PATIENT
  Sex: Female
  Weight: 52.6 kg

DRUGS (1)
  1. SANDOSTATIN LAR [Suspect]
     Indication: CARCINOID SYNDROME
     Route: 030

REACTIONS (2)
  - OVARIAN ADENOMA [None]
  - OVARIAN CYST [None]
